FAERS Safety Report 22641453 (Version 6)
Quarter: 2024Q2

REPORT INFORMATION
  Report Type: Report from Study
  Country: US (occurrence: US)
  Receive Date: 20230626
  Receipt Date: 20240507
  Transmission Date: 20240716
  Serious: Yes (Other)
  Sender: FDA-Public Use
  Company Number: US-OTSUKA-2023_013688

PATIENT
  Age: 84 Year
  Sex: Female
  Weight: 76.66 kg

DRUGS (1)
  1. CEDAZURIDINE\DECITABINE [Suspect]
     Active Substance: CEDAZURIDINE\DECITABINE
     Indication: Myelodysplastic syndrome
     Dosage: 1 DF (35 MG DECITABINE AND 100 MG CEDAZURIDINE), QD (ON DAYS 1-5) OF EACH 28 DAY CYCLE
     Route: 048
     Dates: start: 2021

REACTIONS (11)
  - Myasthenia gravis [Not Recovered/Not Resolved]
  - Renal stone removal [Unknown]
  - Surgery [Unknown]
  - Arthritis [Unknown]
  - Depressed mood [Unknown]
  - Loss of personal independence in daily activities [Unknown]
  - Malaise [Unknown]
  - Contusion [Unknown]
  - Pain [Unknown]
  - Urinary tract infection [Unknown]
  - Haemoglobin decreased [Unknown]

NARRATIVE: CASE EVENT DATE: 20230703
